FAERS Safety Report 8938519 (Version 1)
Quarter: 2012Q4

REPORT INFORMATION
  Report Type: 
  Country: AU (occurrence: AU)
  Receive Date: 20121203
  Receipt Date: 20121203
  Transmission Date: 20130627
  Serious: Yes (Disabling)
  Sender: FDA-Public Use
  Company Number: PHHY2012AU102794

PATIENT
  Sex: Female

DRUGS (1)
  1. CLOZARIL [Suspect]
     Dosage: 75 mg, UNK
     Route: 048
     Dates: start: 20110312, end: 20121108

REACTIONS (3)
  - Balance disorder [Recovering/Resolving]
  - Drug ineffective [Not Recovered/Not Resolved]
  - Weight increased [Unknown]
